FAERS Safety Report 12995723 (Version 18)
Quarter: 2018Q1

REPORT INFORMATION
  Report Type: Report from Study
  Country: CA (occurrence: CA)
  Receive Date: 20161202
  Receipt Date: 20180327
  Transmission Date: 20180508
  Serious: Yes (Hospitalization, Other)
  Sender: FDA-Public Use
  Company Number: CA-GLAXOSMITHKLINE-CA2016GSK165919

PATIENT
  Age: 62 Year
  Sex: Female

DRUGS (10)
  1. PREDNISONE. [Concomitant]
     Active Substance: PREDNISONE
     Indication: ASTHMA
     Dosage: 50 MG, UNK
  2. PREDNISONE. [Concomitant]
     Active Substance: PREDNISONE
     Dosage: 25 MG, UNK
     Dates: start: 20161128
  3. PREDNISONE. [Concomitant]
     Active Substance: PREDNISONE
     Dosage: 5 MG, UNK
  4. MEPOLIZUMAB [Suspect]
     Active Substance: MEPOLIZUMAB
     Indication: ASTHMA
     Dosage: 100 MG, Z
     Route: 042
     Dates: start: 20160916
  5. MEPOLIZUMAB [Suspect]
     Active Substance: MEPOLIZUMAB
     Dosage: 100 MG, Z
     Route: 042
  6. MEPOLIZUMAB [Suspect]
     Active Substance: MEPOLIZUMAB
     Dosage: 100 MG, Z
     Route: 042
  7. MEPOLIZUMAB [Suspect]
     Active Substance: MEPOLIZUMAB
     Dosage: 100 MG, Z
     Route: 042
     Dates: start: 20171027
  8. VENTOLIN [Suspect]
     Active Substance: ALBUTEROL SULFATE
     Indication: PRODUCT USED FOR UNKNOWN INDICATION
     Dosage: UNK UNK, PRN
  9. MEPOLIZUMAB [Suspect]
     Active Substance: MEPOLIZUMAB
     Dosage: 100 MG, Z
     Route: 042
  10. MEPOLIZUMAB [Suspect]
     Active Substance: MEPOLIZUMAB
     Dosage: 100 MG, Z
     Route: 042

REACTIONS (23)
  - Breast disorder [Unknown]
  - Pain in extremity [Not Recovered/Not Resolved]
  - Blood lactic acid increased [Unknown]
  - Pyrexia [Recovered/Resolved]
  - White blood cell count abnormal [Unknown]
  - Drug dose omission [Unknown]
  - Nasopharyngitis [Recovered/Resolved]
  - Fall [Unknown]
  - Hand fracture [Unknown]
  - Blood pressure increased [Unknown]
  - Eye contusion [Recovering/Resolving]
  - Post procedural infection [Not Recovered/Not Resolved]
  - Seroma [Not Recovered/Not Resolved]
  - Wheezing [Unknown]
  - Asthma [Unknown]
  - Neuralgia [Recovered/Resolved]
  - Scar [Unknown]
  - Inappropriate schedule of drug administration [Unknown]
  - Impaired healing [Not Recovered/Not Resolved]
  - Mastectomy [Unknown]
  - Wound closure [Unknown]
  - Breast hyperplasia [Unknown]
  - Breast mass [Unknown]

NARRATIVE: CASE EVENT DATE: 201611
